FAERS Safety Report 8240066 (Version 3)
Quarter: 2014Q1

REPORT INFORMATION
  Report Type: Report from Study
  Country: MX (occurrence: MX)
  Receive Date: 20111110
  Receipt Date: 20140328
  Transmission Date: 20141002
  Serious: Yes (Death, Hospitalization, Disabling, Other)
  Sender: FDA-Public Use
  Company Number: PHHY2011MX098091

PATIENT
  Age: 83 Year
  Sex: Female

DRUGS (5)
  1. CO-DIOVAN [Suspect]
     Indication: HYPERTENSION
     Dosage: 1 DF (160/25 MG), DAILY
     Route: 048
     Dates: start: 200907
  2. CO-DIOVAN [Suspect]
     Dosage: 160/12.5MG, UNK
  3. LOPRESSOR [Concomitant]
     Indication: CARDIAC DISORDER
     Dosage: 0.5 DF, DAILY
  4. CORDARONE [Concomitant]
     Dosage: UNK UKN, UNK
  5. ACETYLSALICYLIC ACID [Concomitant]
     Indication: CARDIAC DISORDER
     Dosage: 1 DF, DAILY

REACTIONS (8)
  - Death [Fatal]
  - Movement disorder [Not Recovered/Not Resolved]
  - Abasia [Not Recovered/Not Resolved]
  - Fall [Not Recovered/Not Resolved]
  - Senile dementia [Not Recovered/Not Resolved]
  - Gastric disorder [Not Recovered/Not Resolved]
  - Bowel movement irregularity [Not Recovered/Not Resolved]
  - Influenza [Not Recovered/Not Resolved]
